FAERS Safety Report 25634342 (Version 1)
Quarter: 2025Q3

REPORT INFORMATION
  Report Type: Report from Study
  Country: AU (occurrence: AU)
  Receive Date: 20250801
  Receipt Date: 20250801
  Transmission Date: 20251021
  Serious: Yes (Hospitalization, Other)
  Sender: TAIHO ONCOLOGY INC
  Company Number: AU-TAIHOP-2024-012568

PATIENT
  Age: 65 Year
  Sex: Female
  Weight: 90 kg

DRUGS (17)
  1. LYTGOBI [Suspect]
     Active Substance: FUTIBATINIB
     Indication: Cholangiocarcinoma
     Route: 048
     Dates: start: 20241211
  2. LYTGOBI [Suspect]
     Active Substance: FUTIBATINIB
     Route: 048
  3. LYTGOBI [Suspect]
     Active Substance: FUTIBATINIB
     Route: 048
  4. DEXAMETHASONE [Concomitant]
     Active Substance: DEXAMETHASONE
     Indication: Drug hypersensitivity
  5. METHOTREXATE [Concomitant]
     Active Substance: METHOTREXATE
     Indication: Drug hypersensitivity
  6. FEXOFENADINE [Concomitant]
     Active Substance: FEXOFENADINE HYDROCHLORIDE
     Indication: Drug hypersensitivity
     Dates: start: 20241211
  7. FEXOFENADINE [Concomitant]
     Active Substance: FEXOFENADINE HYDROCHLORIDE
     Indication: Rash
  8. MONTELUKAST [Concomitant]
     Active Substance: MONTELUKAST
     Indication: Drug hypersensitivity
     Dates: start: 20241211
  9. MONTELUKAST [Concomitant]
     Active Substance: MONTELUKAST
     Indication: Rash
  10. NIZATIDINE [Concomitant]
     Active Substance: NIZATIDINE
     Indication: Drug hypersensitivity
     Dates: start: 20241211
  11. NIZATIDINE [Concomitant]
     Active Substance: NIZATIDINE
     Indication: Rash
  12. THYROXINE [Concomitant]
     Active Substance: LEVOTHYROXINE
     Indication: Drug hypersensitivity
  13. PREDNISOLONE [Concomitant]
     Active Substance: PREDNISOLONE
     Indication: Drug hypersensitivity
  14. METOPROLOL [Concomitant]
     Active Substance: METOPROLOL
     Indication: Gastrooesophageal reflux disease
  15. VITAMIN D [Concomitant]
     Active Substance: VITAMIN D NOS
     Indication: Product used for unknown indication
  16. SINGULAIR [Concomitant]
     Active Substance: MONTELUKAST SODIUM
     Indication: Product used for unknown indication
  17. NEXIUM [Concomitant]
     Active Substance: ESOMEPRAZOLE MAGNESIUM
     Indication: Gastrooesophageal reflux disease

REACTIONS (11)
  - Syncope [Recovered/Resolved]
  - Disease progression [Unknown]
  - Neuropathy peripheral [Unknown]
  - Hyperphosphataemia [Recovering/Resolving]
  - Nail toxicity [Recovering/Resolving]
  - Palmar-plantar erythrodysaesthesia syndrome [Recovering/Resolving]
  - Diarrhoea [Recovered/Resolved]
  - Mucosal inflammation [Unknown]
  - Stomatitis [Unknown]
  - Dyspnoea [Unknown]
  - Cough [Unknown]

NARRATIVE: CASE EVENT DATE: 20241219
